FAERS Safety Report 9132727 (Version 1)
Quarter: 2013Q1

REPORT INFORMATION
  Report Type: Spontaneous
  Country: US (occurrence: US)
  Receive Date: 20130301
  Receipt Date: 20130301
  Transmission Date: 20140127
  Serious: No
  Sender: FDA-Public Use
  Company Number: US-009507513-1302USA010530

PATIENT
  Age: 66 Year
  Sex: Female

DRUGS (5)
  1. INVANZ [Suspect]
     Indication: URINARY TRACT INFECTION
     Dosage: 1 G, QD
     Route: 042
     Dates: start: 20130209
  2. AMBIEN [Concomitant]
  3. LOSARTAN POTASSIUM [Concomitant]
  4. LYRICA [Concomitant]
  5. AMLODIPINE [Concomitant]
     Dosage: IV THROUGH PICC LINE

REACTIONS (12)
  - Rash [Not Recovered/Not Resolved]
  - Erythema [Not Recovered/Not Resolved]
  - Rash generalised [Not Recovered/Not Resolved]
  - Dry skin [Not Recovered/Not Resolved]
  - Feeling abnormal [Not Recovered/Not Resolved]
  - Disturbance in attention [Not Recovered/Not Resolved]
  - Fatigue [Not Recovered/Not Resolved]
  - Myalgia [Not Recovered/Not Resolved]
  - Arthralgia [Not Recovered/Not Resolved]
  - Diarrhoea [Not Recovered/Not Resolved]
  - Skin disorder [Not Recovered/Not Resolved]
  - Gait disturbance [Not Recovered/Not Resolved]
